FAERS Safety Report 9847053 (Version 2)
Quarter: 2014Q1

REPORT INFORMATION
  Report Type: Spontaneous
  Country: FR (occurrence: FR)
  Receive Date: 20140127
  Receipt Date: 20140129
  Transmission Date: 20141002
  Serious: Yes (Other)
  Sender: FDA-Public Use
  Company Number: FR-PFIZER INC-2014020661

PATIENT
  Age: 33 Year
  Sex: Female

DRUGS (10)
  1. PRODILANTIN [Suspect]
     Indication: STATUS EPILEPTICUS
     Dosage: 750 MG, SINGLE
     Route: 042
     Dates: start: 20140107, end: 20140107
  2. PRODILANTIN [Interacting]
     Dosage: 100 MG, 2X/DAY
     Route: 042
     Dates: start: 20140108, end: 20140114
  3. CERTICAN [Interacting]
     Indication: ORGAN TRANSPLANT
     Dosage: 0.75 MG, 2X/DAY
     Route: 048
     Dates: start: 20140107
  4. CERTICAN [Interacting]
     Dosage: 0.75 MG , 6X/DAY
     Dates: start: 20140110
  5. CELLCEPT [Concomitant]
     Dosage: 250 MG, 2X/DAY
  6. ZELITREX [Concomitant]
     Dosage: 500 MG, 4X/DAY
     Dates: start: 20131226, end: 20131230
  7. ZELITREX [Concomitant]
     Dosage: 500 MG, 2X/DAY
     Dates: start: 20140101, end: 20140102
  8. ZELITREX [Concomitant]
     Dosage: 500 MG, 1X/DAY
     Dates: start: 20140103
  9. PROGRAF [Concomitant]
     Dosage: UNK
     Dates: end: 20140108
  10. KEPPRA [Concomitant]

REACTIONS (2)
  - Immunosuppressant drug level decreased [Recovering/Resolving]
  - Drug interaction [Recovering/Resolving]
